FAERS Safety Report 22930696 (Version 2)
Quarter: 2023Q4

REPORT INFORMATION
  Report Type: Spontaneous
  Country: AE (occurrence: AE)
  Receive Date: 20230911
  Receipt Date: 20231222
  Transmission Date: 20240110
  Serious: Yes (Hospitalization, Other)
  Sender: FDA-Public Use
  Company Number: AE-AMGEN-ARESP2023159489

PATIENT
  Age: 77 Year
  Sex: Female

DRUGS (5)
  1. PROLIA [Suspect]
     Active Substance: DENOSUMAB
     Indication: Osteoporosis postmenopausal
     Dosage: UNK
     Route: 065
     Dates: start: 201412, end: 202104
  2. PROLIA [Suspect]
     Active Substance: DENOSUMAB
     Dosage: UNK
     Route: 065
     Dates: start: 202212
  3. ROMOSOZUMAB [Suspect]
     Active Substance: ROMOSOZUMAB
     Indication: Osteoporosis postmenopausal
     Dosage: 210 MILLIGRAM, QMO
     Route: 058
     Dates: start: 202202
  4. ROMOSOZUMAB [Suspect]
     Active Substance: ROMOSOZUMAB
     Dosage: 210 MILLIGRAM, QMO
     Route: 058
     Dates: start: 202203
  5. ROMOSOZUMAB [Suspect]
     Active Substance: ROMOSOZUMAB
     Dosage: 210 MILLIGRAM, QMO
     Route: 058
     Dates: start: 202204

REACTIONS (10)
  - Acute pulmonary oedema [Recovered/Resolved]
  - Atrial fibrillation [Unknown]
  - Aortic valve incompetence [Unknown]
  - Pulmonary hypertension [Unknown]
  - Spinal compression fracture [Unknown]
  - Blood pressure abnormal [Unknown]
  - Jugular vein distension [Unknown]
  - Pleural effusion [Unknown]
  - Diastolic dysfunction [Unknown]
  - Bone densitometry [Unknown]

NARRATIVE: CASE EVENT DATE: 20220101
